FAERS Safety Report 17761975 (Version 1)
Quarter: 2020Q2

REPORT INFORMATION
  Report Type: Report from Study
  Country: US (occurrence: US)
  Receive Date: 20200508
  Receipt Date: 20200508
  Transmission Date: 20200714
  Serious: Yes (Death)
  Sender: FDA-Public Use
  Company Number: US-ASTRAZENECA-2020SE60213

PATIENT
  Sex: Male

DRUGS (1)
  1. TAGRISSO [Suspect]
     Active Substance: OSIMERTINIB
     Route: 048

REACTIONS (4)
  - Vomiting [Unknown]
  - Death [Fatal]
  - Bowel movement irregularity [Unknown]
  - Onychoclasis [Unknown]

NARRATIVE: CASE EVENT DATE: 20200502
